FAERS Safety Report 18912368 (Version 1)
Quarter: 2021Q1

REPORT INFORMATION
  Report Type: Spontaneous
  Country: US (occurrence: US)
  Receive Date: 20210219
  Receipt Date: 20210219
  Transmission Date: 20210420
  Serious: No
  Sender: FDA-Public Use
  Company Number: US-009507513-2102USA006972

PATIENT
  Age: 90 Year
  Sex: Male

DRUGS (1)
  1. DULERA [Suspect]
     Active Substance: FORMOTEROL FUMARATE DIHYDRATE\MOMETASONE FUROATE
     Dosage: 200/5 MICROGRAM, 2 PUFFS 2 TIMES A DAY
     Dates: start: 20210204

REACTIONS (3)
  - Device malfunction [Unknown]
  - No adverse event [Unknown]
  - Poor quality device used [Unknown]

NARRATIVE: CASE EVENT DATE: 202102
